FAERS Safety Report 13336400 (Version 1)
Quarter: 2017Q1

REPORT INFORMATION
  Report Type: Spontaneous
  Country: CN (occurrence: CN)
  Receive Date: 20170315
  Receipt Date: 20170315
  Transmission Date: 20170428
  Serious: Yes (Other)
  Sender: FDA-Public Use
  Company Number: CN-SUN PHARMACEUTICAL INDUSTRIES LTD-2017RR-135292

PATIENT
  Sex: Female

DRUGS (12)
  1. ERBITUX [Suspect]
     Active Substance: CETUXIMAB
     Indication: ADENOCARCINOMA OF COLON
     Dosage: 400 MG/M2, UNK
     Route: 065
     Dates: start: 201211
  2. CALCIUM FOLINAT [Suspect]
     Active Substance: LEUCOVORIN CALCIUM
     Indication: METASTASES TO LYMPH NODES
     Dosage: DAY 1 AND 2 (14 DAY CYCLE)
     Route: 065
     Dates: start: 201211
  3. CALCIUM FOLINAT [Suspect]
     Active Substance: LEUCOVORIN CALCIUM
     Indication: ADENOCARCINOMA OF COLON
     Dosage: DAY 1 AND 2 (14 DAY CYCLE)
     Route: 065
     Dates: start: 201211
  4. ERBITUX [Suspect]
     Active Substance: CETUXIMAB
     Indication: METASTASES TO LYMPH NODES
     Dosage: 250 MG/M2, UNK
     Route: 065
     Dates: start: 201211
  5. ERBITUX [Suspect]
     Active Substance: CETUXIMAB
     Dosage: 250 MG/M2, UNK
     Route: 065
     Dates: start: 201211
  6. IRINOTECAN [Suspect]
     Active Substance: IRINOTECAN
     Indication: ADENOCARCINOMA OF COLON
     Dosage: DAY 1 (14 DAY CYCLE)
     Route: 065
     Dates: start: 201211
  7. ERBITUX [Suspect]
     Active Substance: CETUXIMAB
     Dosage: 400 MG/M2, UNK
     Route: 065
     Dates: start: 201211
  8. IRINOTECAN [Suspect]
     Active Substance: IRINOTECAN
     Indication: METASTASES TO LYMPH NODES
     Dosage: DAY 1 (14 DAY CYCLE)
     Route: 065
     Dates: start: 201211
  9. FLUOROURACIL. [Suspect]
     Active Substance: FLUOROURACIL
     Indication: ADENOCARCINOMA OF COLON
     Dosage: DAY 1 AND 2 (14 DAY CYCLE): 22 HOUR CONTINUOUS INFUSION
     Route: 041
     Dates: start: 201211
  10. FLUOROURACIL. [Suspect]
     Active Substance: FLUOROURACIL
     Indication: ADENOCARCINOMA OF COLON
     Dosage: DAY 1 AND 2 (14 DAY CYCLE): BOLUS INJECTION
     Route: 065
     Dates: start: 201211
  11. FLUOROURACIL. [Suspect]
     Active Substance: FLUOROURACIL
     Indication: METASTASES TO LYMPH NODES
     Dosage: DAY 1 AND 2 (14 DAY CYCLE): BOLUS INJECTION
     Route: 065
     Dates: start: 201211
  12. FLUOROURACIL. [Suspect]
     Active Substance: FLUOROURACIL
     Indication: METASTASES TO LYMPH NODES
     Dosage: DAY 1 AND 2 (14 DAY CYCLE): 22 HOUR CONTINUOUS INFUSION
     Route: 041
     Dates: start: 201211

REACTIONS (3)
  - Bone marrow failure [Unknown]
  - Rash [Unknown]
  - Trichomegaly [Unknown]
